FAERS Safety Report 14190113 (Version 1)
Quarter: 2017Q4

REPORT INFORMATION
  Report Type: Spontaneous
  Country: FR (occurrence: FR)
  Receive Date: 20171115
  Receipt Date: 20171115
  Transmission Date: 20180321
  Serious: Yes (Other)
  Sender: FDA-Public Use
  Company Number: FR-MERCK KGAA-2034133

PATIENT
  Age: 68 Year
  Sex: Female

DRUGS (2)
  1. NOVOTHYROX [Suspect]
     Active Substance: LEVOTHYROXINE SODIUM
     Indication: THYROIDECTOMY
     Route: 048
     Dates: start: 201705
  2. EPCLUSA [Concomitant]
     Active Substance: SOFOSBUVIR\VELPATASVIR
     Dates: start: 201706, end: 201708

REACTIONS (4)
  - Vertigo [Unknown]
  - Fatigue [Unknown]
  - Weight increased [Unknown]
  - Blood thyroid stimulating hormone normal [Unknown]

NARRATIVE: CASE EVENT DATE: 201706
